FAERS Safety Report 5098529-9 (Version None)
Quarter: 2006Q3

REPORT INFORMATION
  Report Type: 
  Country: None (occurrence: None)
  Receive Date: 20060906
  Receipt Date: 20060217
  Transmission Date: 20061208
  Serious: No
  Sender: FDA-Public Use
  Company Number: US-GLAXOSMITHKLINE-A0594152A

PATIENT
  Age: 86 Year
  Sex: Male

DRUGS (9)
  1. REQUIP [Suspect]
     Indication: RESTLESS LEGS SYNDROME
     Dosage: 1MG PER DAY
     Route: 048
     Dates: start: 20051101
  2. LASIX [Concomitant]
  3. SPIRONOLACTONE [Concomitant]
  4. CALCIUM GLUCONATE [Concomitant]
  5. GLUCOMIDE [Concomitant]
  6. SYNTHROID [Concomitant]
  7. PERMAX [Concomitant]
  8. XOPENEX [Concomitant]
  9. ADVAIR DISKUS 100/50 [Concomitant]

REACTIONS (2)
  - INSOMNIA [None]
  - SOMNOLENCE [None]
